FAERS Safety Report 9437643 (Version 8)
Quarter: 2014Q2

REPORT INFORMATION
  Report Type: Report from Study
  Country: US (occurrence: US)
  Receive Date: 20130802
  Receipt Date: 20140416
  Transmission Date: 20141212
  Serious: Yes (Hospitalization)
  Sender: FDA-Public Use
  Company Number: US-BAYER-2013-087458

PATIENT
  Age: 71 Year
  Sex: Male
  Weight: 88.5 kg

DRUGS (14)
  1. ALPHARADIN [Suspect]
     Indication: HORMONE-REFRACTORY PROSTATE CANCER
     Dosage: 4645
     Route: 042
     Dates: start: 20130225, end: 20130225
  2. ALPHARADIN [Suspect]
     Indication: METASTASES TO BONE
     Dosage: 4700
     Route: 042
     Dates: start: 20130325, end: 20130325
  3. ALPHARADIN [Suspect]
     Indication: HORMONE-REFRACTORY PROSTATE CANCER
     Dosage: 4730
     Route: 042
     Dates: start: 20130422, end: 20130422
  4. ALPHARADIN [Suspect]
     Indication: HORMONE-REFRACTORY PROSTATE CANCER
     Dosage: 4550
     Route: 042
     Dates: start: 20130520, end: 20130520
  5. ALPHARADIN [Suspect]
     Indication: HORMONE-REFRACTORY PROSTATE CANCER
     Dosage: 4550
     Route: 042
     Dates: start: 20130617, end: 20130617
  6. OXYCODONE [Concomitant]
     Indication: PAIN
     Dosage: 5 MG, PRN
     Route: 048
     Dates: start: 20130225, end: 20130711
  7. TYLENOL [PARACETAMOL] [Concomitant]
     Indication: PAIN
     Dosage: 650 MG, PRN
     Route: 048
     Dates: start: 20130520
  8. OXYCONTIN [Concomitant]
     Indication: PAIN
     Dosage: DAILY DOSE 10 MG
     Route: 048
     Dates: start: 20130711, end: 20130716
  9. OXYCONTIN [Concomitant]
     Indication: PAIN
     Dosage: 20 MG DAILY
     Dates: start: 20130716
  10. CALCIUM [Concomitant]
     Indication: SUPPLEMENTATION THERAPY
     Dosage: DAILY DOSE 1200 MG
     Route: 048
     Dates: start: 20110921
  11. VITAMIN D [Concomitant]
     Indication: SUPPLEMENTATION THERAPY
     Dosage: DAILY DOSE 800 MG
     Route: 048
     Dates: start: 20110921
  12. PROCHLORPERAZINE [Concomitant]
     Dosage: 10 MG, QID
  13. SENNA [Concomitant]
     Dosage: UNK UNK, HS
     Route: 048
  14. ZOLPIDEM [Concomitant]
     Dosage: 10 MG, HS
     Route: 048

REACTIONS (6)
  - Pulmonary embolism [Recovered/Resolved]
  - Abdominal pain [Recovered/Resolved]
  - Dehydration [Recovered/Resolved]
  - Blood calcium increased [Recovered/Resolved]
  - Confusional state [Recovered/Resolved]
  - Fatigue [Recovered/Resolved]
